FAERS Safety Report 6010975-5 (Version None)
Quarter: 2008Q4

REPORT INFORMATION
  Report Type: 
  Country: None (occurrence: None)
  Receive Date: 20081218
  Receipt Date: 20081205
  Transmission Date: 20090506
  Serious: Yes (Life-Threatening, Other)
  Sender: FDA-Public Use
  Company Number: B0549294A

PATIENT
  Age: 32 Year
  Sex: Female
  Weight: 55 kg

DRUGS (4)
  1. AVAMYS [Suspect]
     Dosage: 55MCG PER DAY
     Route: 045
     Dates: start: 20081204, end: 20081204
  2. SINGULAIR [Concomitant]
     Dosage: 5MG PER DAY
     Route: 048
     Dates: start: 20050110
  3. ALVESCO [Concomitant]
     Indication: ASTHMA
     Dosage: 160MCG PER DAY
     Route: 055
     Dates: start: 20051222
  4. RUPAFIN [Concomitant]
     Dosage: 10MG PER DAY
     Route: 048
     Dates: start: 20080721

REACTIONS (5)
  - ANAPHYLACTIC REACTION [None]
  - LARYNGEAL OEDEMA [None]
  - NASAL CONGESTION [None]
  - TACHYCARDIA [None]
  - TREMOR [None]
